FAERS Safety Report 9535911 (Version 1)
Quarter: 2013Q1

REPORT INFORMATION
  Report Type: Spontaneous
  Country: US (occurrence: None)
  Receive Date: 20130307
  Receipt Date: 20130307
  Transmission Date: 20140127
  Serious: Yes (Hospitalization)
  Sender: FDA-Public Use
  Company Number: PHEH2012US004554

PATIENT
  Age: 43 Year
  Sex: Male

DRUGS (4)
  1. TASIGNA [Suspect]
     Indication: CHRONIC MYELOID LEUKAEMIA
     Route: 048
     Dates: start: 20110510
  2. HUMALOG [Concomitant]
  3. RESTORIL (TEMAZEPAM) [Concomitant]
  4. VICODIN (HYDROCODONE BITARTRATE, PARACETAMOL) [Concomitant]

REACTIONS (4)
  - Dehydration [None]
  - Nausea [None]
  - Impaired gastric emptying [None]
  - Vomiting [None]
